FAERS Safety Report 4723846-9 (Version None)
Quarter: 2005Q3

REPORT INFORMATION
  Report Type: 
  Country: None (occurrence: None)
  Receive Date: 20050721
  Receipt Date: 20050708
  Transmission Date: 20060218
  Serious: Yes (Hospitalization)
  Sender: FDA-Public Use
  Company Number: 11763

PATIENT
  Age: 61 Year
  Sex: Female

DRUGS (6)
  1. DACARBAZINE [Suspect]
     Dosage: 800 MG/M2 PER_CYCLE UNK
     Dates: start: 20050502, end: 20050502
  2. DECITABINE [Suspect]
     Dosage: 10 MG/M2 PER_CYCLE IV
     Route: 042
     Dates: start: 20050425, end: 20050429
  3. GLYBURIDE [Concomitant]
  4. ATENOLOL [Concomitant]
  5. ATORVASTATIN CALCIUM [Concomitant]
  6. COLACE [Concomitant]

REACTIONS (10)
  - DUODENAL NEOPLASM [None]
  - GASTRIC NEOPLASM [None]
  - HAEMATOCRIT DECREASED [None]
  - HAEMOGLOBIN DECREASED [None]
  - LYMPHADENOPATHY [None]
  - MUCOSAL ULCERATION [None]
  - NEOPLASM PROGRESSION [None]
  - RED BLOOD CELL COUNT DECREASED [None]
  - SMALL INTESTINAL HAEMORRHAGE [None]
  - WHITE BLOOD CELL COUNT DECREASED [None]
